FAERS Safety Report 14874682 (Version 1)
Quarter: 2018Q2

REPORT INFORMATION
  Report Type: Spontaneous
  Country: NL (occurrence: NL)
  Receive Date: 20180510
  Receipt Date: 20180510
  Transmission Date: 20180711
  Serious: Yes (Other)
  Sender: FDA-Public Use
  Company Number: NL-TEVA-2018-NL-891392

PATIENT
  Sex: Female

DRUGS (5)
  1. FERROFUMARAAT [Concomitant]
  2. SALBUTAMOL AUROBINDO INHALATOR 100 MICROGRAM/DOSIS A?ROSOL, SUSPENSIE [Suspect]
     Active Substance: ALBUTEROL
     Dosage: 100 MICROGRAM/DOSIS
     Dates: start: 201711
  3. FOSTER [Concomitant]
     Active Substance: BECLOMETHASONE\FORMOTEROL
  4. CALCIUM CHEW VITAMIN D [Concomitant]
  5. SPIRIVA [Concomitant]
     Active Substance: TIOTROPIUM BROMIDE MONOHYDRATE

REACTIONS (1)
  - Angina bullosa haemorrhagica [Not Recovered/Not Resolved]

NARRATIVE: CASE EVENT DATE: 2017
